FAERS Safety Report 5794036-6 (Version None)
Quarter: 2008Q2

REPORT INFORMATION
  Report Type: 
  Country: None (occurrence: None)
  Receive Date: 20080627
  Receipt Date: 20080617
  Transmission Date: 20081010
  Serious: Yes (Hospitalization)
  Sender: FDA-Public Use
  Company Number: JP-PFIZER INC-2008024021

PATIENT
  Sex: Male

DRUGS (4)
  1. IRINOTECAN HCL [Suspect]
     Indication: LARGE INTESTINE CARCINOMA
     Dosage: DAILY DOSE:240MG
     Route: 042
     Dates: start: 20070723, end: 20080218
  2. FLUOROURACIL [Concomitant]
     Indication: LARGE INTESTINE CARCINOMA
     Route: 042
     Dates: start: 20080218, end: 20080218
  3. FLUOROURACIL [Concomitant]
     Route: 042
     Dates: start: 20080218, end: 20080220
  4. CALCIUM FOLINATE [Concomitant]
     Indication: LARGE INTESTINE CARCINOMA
     Route: 042
     Dates: start: 20080218, end: 20080218

REACTIONS (1)
  - HEPATITIS [None]
